FAERS Safety Report 8602244-1 (Version None)
Quarter: 2012Q3

REPORT INFORMATION
  Report Type: 
  Country: None (occurrence: None)
  Receive Date: 20120817
  Receipt Date: 20120808
  Transmission Date: 20120928
  Serious: Yes (Hospitalization, Other)
  Sender: FDA-Public Use
  Company Number: US-ABBOTT-12P-163-0966720-00

PATIENT
  Sex: Female

DRUGS (5)
  1. LEXAPRO [Concomitant]
     Indication: PRODUCT USED FOR UNKNOWN INDICATION
  2. TRAZODONE HCL [Concomitant]
     Indication: PRODUCT USED FOR UNKNOWN INDICATION
  3. LAMICTAL [Concomitant]
     Indication: PRODUCT USED FOR UNKNOWN INDICATION
  4. CLONAZEPAM [Concomitant]
     Indication: PRODUCT USED FOR UNKNOWN INDICATION
  5. HUMIRA [Suspect]
     Indication: CROHN'S DISEASE
     Dates: start: 20120131

REACTIONS (9)
  - INTESTINAL MASS [None]
  - ABDOMINAL PAIN [None]
  - ENDOMETRIOSIS [None]
  - GASTRODUODENITIS [None]
  - OVARIAN MASS [None]
  - SUICIDAL IDEATION [None]
  - HAEMATOCHEZIA [None]
  - LABORATORY TEST ABNORMAL [None]
  - CYSTITIS [None]
